FAERS Safety Report 24458626 (Version 1)
Quarter: 2024Q4

REPORT INFORMATION
  Report Type: Report from Study
  Country: US (occurrence: US)
  Receive Date: 20241018
  Receipt Date: 20241018
  Transmission Date: 20250114
  Serious: No
  Sender: ROCHE
  Company Number: US-ROCHE-3522541

PATIENT
  Age: 64 Year
  Sex: Female

DRUGS (11)
  1. RITUXAN [Suspect]
     Active Substance: RITUXIMAB
     Indication: Dermatomyositis
     Dosage: DAY 1 AND 15 EVERY 6 MONTHS
     Route: 041
     Dates: start: 20230113
  2. RITUXAN [Suspect]
     Active Substance: RITUXIMAB
     Indication: Myopathy
  3. BACITRACIN ZINC [Concomitant]
     Dosage: 500 UNIT/GRAM
     Dates: start: 20201216
  4. DOXYCYCLINE [Concomitant]
     Active Substance: DOXYCYCLINE
     Dosage: 100 MG TAB ORAL
  5. EZETIMIBE [Concomitant]
     Active Substance: EZETIMIBE
     Dosage: 10 MG ORAL TABLET
  6. KETOROLAC [Concomitant]
     Active Substance: KETOROLAC TROMETHAMINE
     Dosage: 10 MG ORAL TAB
  7. METHOTREXATE [Concomitant]
     Active Substance: METHOTREXATE
     Dosage: 25 MG/ML ORAL TAB
     Dates: start: 20231201
  8. MINOCYCLINE [Concomitant]
     Active Substance: MINOCYCLINE HYDROCHLORIDE
     Dosage: 50 MG ORAL TAB
  9. PREDNISONE [Concomitant]
     Active Substance: PREDNISONE
     Dosage: ORAL TAB 5 MG
     Dates: start: 20231201
  10. IMIPRAMINE HYDROCHLORIDE [Concomitant]
     Active Substance: IMIPRAMINE HYDROCHLORIDE
     Dosage: 25 MG ORAL TAB
  11. FOLIC ACID [Concomitant]
     Active Substance: FOLIC ACID
     Dosage: 1 MG ORAL TAB
     Dates: start: 20210811

REACTIONS (2)
  - Off label use [Unknown]
  - No adverse event [Unknown]

NARRATIVE: CASE EVENT DATE: 20230113
